FAERS Safety Report 8509189-6 (Version None)
Quarter: 2012Q3

REPORT INFORMATION
  Report Type: 
  Country: None (occurrence: None)
  Receive Date: 20120713
  Receipt Date: 20120711
  Transmission Date: 20120928
  Serious: Yes (Other)
  Sender: FDA-Public Use
  Company Number: PHHY2012AU053620

PATIENT
  Sex: Female

DRUGS (3)
  1. ZOLEDRONOC ACID [Suspect]
     Indication: OSTEOPOROSIS
     Dosage: 5 MG, UNK
     Route: 042
     Dates: start: 20120522
  2. DENOSUMAB [Concomitant]
     Dosage: 120 MG (SC MONTHLY), UNK
  3. TRASTUZUMAB [Concomitant]
     Indication: BREAST CANCER
     Dosage: 360 MG 3 MONTHLY
     Dates: start: 20120220

REACTIONS (3)
  - METASTASES TO SPINE [None]
  - METASTASES TO BONE [None]
  - TOOTH DISORDER [None]
